FAERS Safety Report 25947029 (Version 1)
Quarter: 2025Q4

REPORT INFORMATION
  Report Type: Spontaneous
  Country: US (occurrence: US)
  Receive Date: 20251022
  Receipt Date: 20251022
  Transmission Date: 20260117
  Serious: No
  Sender: CSL BEHRING
  Company Number: US-BEH-2025221272

PATIENT
  Age: 50 Year
  Sex: Male

DRUGS (8)
  1. IDELVION [Suspect]
     Active Substance: COAGULATION FACTOR IX RECOMBINANT HUMAN
     Indication: Factor IX deficiency
     Dosage: 2408 IU, PRN, (2168-2648) FOR MINOR BREAKTHROUGH BLEEDS
     Route: 042
     Dates: start: 202412
  2. IDELVION [Suspect]
     Active Substance: COAGULATION FACTOR IX RECOMBINANT HUMAN
     Indication: Factor IX deficiency
     Dosage: 2408 IU, PRN, (2168-2648) FOR MINOR BREAKTHROUGH BLEEDS
     Route: 042
     Dates: start: 202412
  3. IDELVION [Suspect]
     Active Substance: COAGULATION FACTOR IX RECOMBINANT HUMAN
     Dosage: 2408 IU, QW (2168-2648) FOR MINOR BREAKTHROUGH BLEEDS
     Route: 042
     Dates: start: 202412
  4. IDELVION [Suspect]
     Active Substance: COAGULATION FACTOR IX RECOMBINANT HUMAN
     Dosage: 2408 IU, QW (2168-2648) FOR MINOR BREAKTHROUGH BLEEDS
     Route: 042
     Dates: start: 202412
  5. IDELVION [Suspect]
     Active Substance: COAGULATION FACTOR IX RECOMBINANT HUMAN
     Dosage: 6020 IU, (5418-6622) FOR MAJOR BLEEDS
     Route: 042
     Dates: start: 202412
  6. IDELVION [Suspect]
     Active Substance: COAGULATION FACTOR IX RECOMBINANT HUMAN
     Dosage: 6020 IU, (5418-6622) FOR MAJOR BLEEDS
     Route: 042
     Dates: start: 202412
  7. IDELVION [Suspect]
     Active Substance: COAGULATION FACTOR IX RECOMBINANT HUMAN
     Dosage: UNK
     Route: 065
     Dates: start: 20250910
  8. IDELVION [Suspect]
     Active Substance: COAGULATION FACTOR IX RECOMBINANT HUMAN
     Dosage: UNK
     Route: 065
     Dates: start: 20250910

REACTIONS (1)
  - Tooth infection [Unknown]

NARRATIVE: CASE EVENT DATE: 20250901
